FAERS Safety Report 9472173 (Version 1)
Quarter: 2013Q3

REPORT INFORMATION
  Report Type: Spontaneous
  Country: US (occurrence: None)
  Receive Date: 20130821
  Receipt Date: 20130821
  Transmission Date: 20140515
  Serious: Yes (Other)
  Sender: FDA-Public Use
  Company Number: None

PATIENT
  Age: 42 Year
  Sex: Male

DRUGS (4)
  1. MORPHINE SULFATE [Suspect]
     Indication: CERVICAL RADICULOPATHY
     Dosage: 1  PO  QD
     Route: 048
  2. OXYCODONE [Suspect]
     Indication: RADICULOPATHY
     Dosage: 1  PO  QD
     Route: 048
  3. PERCOCET [Suspect]
     Dosage: 1  PO  QD
     Route: 048
  4. MS CONTIN [Suspect]
     Dosage: 1  PO  QD
     Route: 048

REACTIONS (2)
  - Rash generalised [None]
  - Abdominal pain [None]
